FAERS Safety Report 13252301 (Version 1)
Quarter: 2017Q1

REPORT INFORMATION
  Report Type: Spontaneous
  Country: AU (occurrence: AU)
  Receive Date: 20170220
  Receipt Date: 20170220
  Transmission Date: 20170428
  Serious: Yes (Other)
  Sender: FDA-Public Use
  Company Number: AU-BAYER-2017-032308

PATIENT
  Sex: Female

DRUGS (1)
  1. CLARATYNE 10 MG [Suspect]
     Active Substance: LORATADINE
     Dosage: UNK

REACTIONS (3)
  - Thinking abnormal [None]
  - Disturbance in attention [None]
  - Intra-abdominal fluid collection [None]

NARRATIVE: CASE EVENT DATE: 2016
